FAERS Safety Report 18763151 (Version 1)
Quarter: 2021Q1

REPORT INFORMATION
  Report Type: Spontaneous
  Country: US (occurrence: US)
  Receive Date: 20210120
  Receipt Date: 20210120
  Transmission Date: 20210419
  Serious: No
  Sender: FDA-Public Use
  Company Number: US-PFIZER INC-2021044636

PATIENT
  Age: 68 Year
  Sex: Female

DRUGS (4)
  1. MEDROL [Suspect]
     Active Substance: METHYLPREDNISOLONE
     Indication: NASAL CONGESTION
  2. MEDROL [Suspect]
     Active Substance: METHYLPREDNISOLONE
     Indication: RHINITIS
     Dosage: UNK
  3. MEDROL [Suspect]
     Active Substance: METHYLPREDNISOLONE
     Indication: COUGH
  4. MEDROL [Suspect]
     Active Substance: METHYLPREDNISOLONE
     Indication: EOSINOPHIL COUNT INCREASED

REACTIONS (1)
  - Drug ineffective [Unknown]
